FAERS Safety Report 6861154-0 (Version None)
Quarter: 2010Q3

REPORT INFORMATION
  Report Type: 
  Country: None (occurrence: None)
  Receive Date: 20100720
  Receipt Date: 20100714
  Transmission Date: 20110219
  Serious: Yes (Hospitalization)
  Sender: FDA-Public Use
  Company Number: CHPA2010US11513

PATIENT
  Age: 52 Year
  Sex: Female
  Weight: 56.689 kg

DRUGS (1)
  1. CONTROL PLP (NCH) [Suspect]
     Indication: SMOKING CESSATION THERAPY
     Dosage: 14 MG, UNK
     Route: 062
     Dates: start: 20090101, end: 20090101

REACTIONS (2)
  - HYSTERECTOMY [None]
  - WRONG TECHNIQUE IN DRUG USAGE PROCESS [None]
